FAERS Safety Report 6731122-8 (Version None)
Quarter: 2010Q2

REPORT INFORMATION
  Report Type: 
  Country: None (occurrence: None)
  Receive Date: 20100518
  Receipt Date: 20100402
  Transmission Date: 20101027
  Serious: No
  Sender: FDA-Public Use
  Company Number: A0853959A

PATIENT
  Sex: Male

DRUGS (5)
  1. COREG CR [Suspect]
     Indication: DRUG USE FOR UNKNOWN INDICATION
     Route: 065
  2. AMLODIPINE BESYLATE AND BENAZEPRIL HCL [Suspect]
     Indication: DRUG USE FOR UNKNOWN INDICATION
     Dosage: 10MG UNKNOWN
     Route: 065
  3. SYNTHROID [Suspect]
     Indication: DRUG USE FOR UNKNOWN INDICATION
     Dosage: .05MG UNKNOWN
     Route: 065
  4. METFORMIN HYDROCHLORIDE [Concomitant]
     Indication: DRUG USE FOR UNKNOWN INDICATION
     Dosage: 1000MG UNKNOWN
     Route: 065
  5. LIPITOR [Concomitant]
     Dosage: 10MG UNKNOWN
     Route: 065

REACTIONS (2)
  - FATIGUE [None]
  - HEART RATE DECREASED [None]
